FAERS Safety Report 8045292-5 (Version None)
Quarter: 2012Q1

REPORT INFORMATION
  Report Type: 
  Country: None (occurrence: None)
  Receive Date: 20120113
  Receipt Date: 20120110
  Transmission Date: 20120608
  Serious: Yes (Hospitalization)
  Sender: FDA-Public Use
  Company Number: BR-ROCHE-744030

PATIENT
  Sex: Female
  Weight: 100 kg

DRUGS (9)
  1. ACTEMRA [Suspect]
     Route: 042
  2. FLUOXETINE [Concomitant]
  3. METFORMIN HCL [Concomitant]
  4. METHOTREXATE [Suspect]
     Route: 065
  5. AMARYL [Concomitant]
     Indication: DIABETES MELLITUS
  6. DIAZEPAM [Suspect]
     Indication: PRODUCT USED FOR UNKNOWN INDICATION
     Route: 065
  7. OXYCONTIN [Concomitant]
  8. METHOTREXATE [Suspect]
     Indication: PRODUCT USED FOR UNKNOWN INDICATION
     Route: 065
  9. ACTEMRA [Suspect]
     Indication: RHEUMATOID ARTHRITIS
     Dosage: FORM : INFUSION
     Route: 042

REACTIONS (15)
  - SWELLING [None]
  - CELLULITIS [None]
  - PAIN [None]
  - CONFUSIONAL STATE [None]
  - DRUG INEFFECTIVE [None]
  - SKIN HAEMORRHAGE [None]
  - ROAD TRAFFIC ACCIDENT [None]
  - DRUG HYPERSENSITIVITY [None]
  - PAROTITIS [None]
  - BONE DISORDER [None]
  - EAR INFECTION [None]
  - FATIGUE [None]
  - OEDEMA PERIPHERAL [None]
  - HYPERSENSITIVITY [None]
  - MEMORY IMPAIRMENT [None]
